FAERS Safety Report 14716246 (Version 2)
Quarter: 2018Q2

REPORT INFORMATION
  Report Type: Spontaneous
  Country: AU (occurrence: AU)
  Receive Date: 20180404
  Receipt Date: 20180412
  Transmission Date: 20180711
  Serious: Yes (Hospitalization)
  Sender: FDA-Public Use
  Company Number: AU-NAPPMUNDI-GBR-2018-0054534

PATIENT
  Age: 69 Year
  Sex: Male
  Weight: 85 kg

DRUGS (1)
  1. TARGIN [Suspect]
     Active Substance: NALOXONE HYDROCHLORIDE\OXYCODONE HYDROCHLORIDE
     Indication: MUSCULOSKELETAL CHEST PAIN
     Dosage: 20/10 MG (10/5 MG TWICE DAILY)
     Route: 048
     Dates: start: 20180212, end: 20180222

REACTIONS (6)
  - Paranoia [Recovered/Resolved]
  - Panic attack [Recovered/Resolved]
  - Loss of consciousness [Unknown]
  - Dyspnoea [Unknown]
  - Suicidal ideation [Recovered/Resolved]
  - Therapy cessation [Recovered/Resolved]

NARRATIVE: CASE EVENT DATE: 20180214
